FAERS Safety Report 25286737 (Version 2)
Quarter: 2025Q2

REPORT INFORMATION
  Report Type: Spontaneous
  Country: HU (occurrence: HU)
  Receive Date: 20250509
  Receipt Date: 20250519
  Transmission Date: 20250717
  Serious: Yes (Hospitalization)
  Sender: ALEXION PHARMACEUTICALS
  Company Number: HU-AstraZeneca-CH-00865467AP

PATIENT
  Age: 71 Year

DRUGS (1)
  1. DAPAGLIFLOZIN [Suspect]
     Active Substance: DAPAGLIFLOZIN
     Indication: Type 2 diabetes mellitus
     Dosage: 10 MILLIGRAM, EVERY MORNING

REACTIONS (4)
  - Hydrocephalus [Recovering/Resolving]
  - Gait disturbance [Recovering/Resolving]
  - Motor dysfunction [Unknown]
  - Product packaging quantity issue [Unknown]
